FAERS Safety Report 13062160 (Version 1)
Quarter: 2016Q4

REPORT INFORMATION
  Report Type: Spontaneous
  Country: FR (occurrence: FR)
  Receive Date: 20161226
  Receipt Date: 20161226
  Transmission Date: 20170207
  Serious: Yes (Hospitalization, Other)
  Sender: FDA-Public Use
  Company Number: FR-BRISTOL-MYERS SQUIBB COMPANY-BMS-2016-108964

PATIENT
  Sex: Female

DRUGS (4)
  1. ELIQUIS [Interacting]
     Active Substance: APIXABAN
     Indication: DEEP VEIN THROMBOSIS
     Route: 065
  2. PAROXETINE. [Interacting]
     Active Substance: PAROXETINE
     Indication: MAJOR DEPRESSION
     Dosage: 20 MG, QD
     Route: 048
     Dates: end: 20161026
  3. ELIQUIS [Suspect]
     Active Substance: APIXABAN
     Indication: THROMBOSIS PROPHYLAXIS
     Dosage: 2 DF, BID
     Route: 048
     Dates: start: 20161026, end: 20161027
  4. CYMBALTA [Interacting]
     Active Substance: DULOXETINE HYDROCHLORIDE
     Indication: MAJOR DEPRESSION
     Dosage: 1 DF, QD
     Route: 048
     Dates: end: 20161026

REACTIONS (9)
  - Haematemesis [Recovered/Resolved]
  - Upper gastrointestinal haemorrhage [Unknown]
  - Anaemia [Recovering/Resolving]
  - Packed red blood cell transfusion [Unknown]
  - Loss of consciousness [Unknown]
  - Drug interaction [Unknown]
  - Fall [Unknown]
  - Head injury [Unknown]
  - Oesophageal ulcer [Unknown]
